FAERS Safety Report 24876562 (Version 1)
Quarter: 2025Q1

REPORT INFORMATION
  Report Type: Spontaneous
  Country: CH (occurrence: CH)
  Receive Date: 20250123
  Receipt Date: 20250123
  Transmission Date: 20250409
  Serious: Yes (Hospitalization)
  Sender: ROCHE
  Company Number: None

PATIENT
  Age: 5 Year
  Sex: Female
  Weight: 13 kg

DRUGS (10)
  1. VALGANCICLOVIR [Suspect]
     Active Substance: VALGANCICLOVIR
     Indication: Cytomegalovirus test positive
     Route: 065
     Dates: start: 202404, end: 20240605
  2. OLUMIANT [Suspect]
     Active Substance: BARICITINIB
     Indication: Systemic lupus erythematosus
     Dosage: EVERY 12 HOURS (BID)
     Route: 048
     Dates: start: 20220601, end: 20240609
  3. OLUMIANT [Suspect]
     Active Substance: BARICITINIB
     Dosage: EVERY 12 HOURS (BID)
     Route: 048
     Dates: start: 20240618, end: 20240628
  4. SULFAMETHOXAZOLE\TRIMETHOPRIM [Suspect]
     Active Substance: SULFAMETHOXAZOLE\TRIMETHOPRIM
     Indication: Product used for unknown indication
     Dosage: 68MG 3X/WEEK
     Route: 048
     Dates: start: 202404, end: 20240605
  5. SULFAMETHOXAZOLE\TRIMETHOPRIM [Suspect]
     Active Substance: SULFAMETHOXAZOLE\TRIMETHOPRIM
     Dosage: 75MG 3X/WEEK BY PEG
     Route: 065
     Dates: start: 20240620, end: 20240628
  6. ESOMEPRAZOLE [Concomitant]
     Active Substance: ESOMEPRAZOLE
     Route: 048
     Dates: end: 20240617
  7. TACROLIMUS [Concomitant]
     Active Substance: TACROLIMUS
     Route: 048
     Dates: end: 20240610
  8. TACROLIMUS [Concomitant]
     Active Substance: TACROLIMUS
     Route: 048
     Dates: start: 20240611
  9. AMOXICILLIN\CLAVULANATE POTASSIUM [Concomitant]
     Active Substance: AMOXICILLIN\CLAVULANATE POTASSIUM
     Dosage: EVERY 8 HOUS (TID)
     Route: 048
     Dates: start: 20240511, end: 20240515
  10. AMOXICILLIN\CLAVULANATE POTASSIUM [Concomitant]
     Active Substance: AMOXICILLIN\CLAVULANATE POTASSIUM
     Dosage: EVERY 8 HOURS (TID)
     Route: 048
     Dates: start: 20240417, end: 20240424

REACTIONS (2)
  - Agranulocytosis [Not Recovered/Not Resolved]
  - Off label use [Unknown]

NARRATIVE: CASE EVENT DATE: 20240417
